FAERS Safety Report 10096951 (Version 2)
Quarter: 2014Q2

REPORT INFORMATION
  Report Type: Spontaneous
  Country: US (occurrence: US)
  Receive Date: 20140422
  Receipt Date: 20140422
  Transmission Date: 20141212
  Serious: No
  Sender: FDA-Public Use
  Company Number: US-GILEAD-2012-0062475

PATIENT
  Sex: Female

DRUGS (3)
  1. LETAIRIS [Suspect]
     Indication: PULMONARY HYPERTENSION
     Dosage: 5 MG, QD
     Route: 048
     Dates: start: 20120613
  2. LETAIRIS [Suspect]
     Indication: DILATATION VENTRICULAR
  3. LETAIRIS [Suspect]
     Indication: PULSE PRESSURE INCREASED

REACTIONS (2)
  - Wheezing [Unknown]
  - Unevaluable event [Unknown]
